FAERS Safety Report 17902955 (Version 7)
Quarter: 2020Q3

REPORT INFORMATION
  Report Type: Report from Study
  Country: None (occurrence: GB)
  Receive Date: 20200617
  Receipt Date: 20200707
  Transmission Date: 20201103
  Serious: Yes (Hospitalization)
  Sender: FDA-Public Use
  Company Number: GB-ABBVIE-20K-167-3446248-00

PATIENT
  Sex: Male

DRUGS (5)
  1. DUODOPA [Suspect]
     Active Substance: CARBIDOPA\LEVODOPA
     Dosage: MORNING DOSE : 5ML
     Route: 050
     Dates: start: 202006, end: 202006
  2. DUODOPA [Suspect]
     Active Substance: CARBIDOPA\LEVODOPA
     Dosage: MORNING DOSE : 5ML AND CONTINUOUS RATE: 5.0ML?100ML ONE CASSETTE PER DAY
     Route: 050
     Dates: start: 202006, end: 202006
  3. DUODOPA [Suspect]
     Active Substance: CARBIDOPA\LEVODOPA
     Dosage: MORNING DOSE 10.0 ML AND CONTINUOUS RATE 5.0ML?DOSE INCREASED.
     Route: 050
     Dates: start: 202006
  4. APOMORPHINE [Concomitant]
     Active Substance: APOMORPHINE
     Indication: PRODUCT USED FOR UNKNOWN INDICATION
  5. DUODOPA [Suspect]
     Active Substance: CARBIDOPA\LEVODOPA
     Indication: PARKINSON^S DISEASE
     Dosage: 100ML CASSETTE DAILY??5MG/1ML??20MG/1ML
     Route: 050
     Dates: end: 2020

REACTIONS (6)
  - Muscle rigidity [Unknown]
  - Weight decreased [Unknown]
  - Dyskinesia [Recovering/Resolving]
  - Device dislocation [Recovered/Resolved]
  - Pain in extremity [Unknown]
  - Fall [Unknown]

NARRATIVE: CASE EVENT DATE: 2020
